FAERS Safety Report 8214411-X (Version None)
Quarter: 2012Q1

REPORT INFORMATION
  Report Type: 
  Country: None (occurrence: None)
  Receive Date: 20120316
  Receipt Date: 20120306
  Transmission Date: 20120608
  Serious: Yes (Life-Threatening, Hospitalization, Disabling, Other)
  Sender: FDA-Public Use
  Company Number: FI-JNJFOC-20100505289

PATIENT
  Sex: Female

DRUGS (11)
  1. SULFASALAZINE [Concomitant]
     Indication: COLITIS ULCERATIVE
     Dosage: INITIATED ^YEARS^ AGO
     Route: 048
     Dates: end: 20100203
  2. CALCIUM CARBONATE [Concomitant]
     Route: 065
  3. NAPROSYN [Concomitant]
     Dosage: 5 TO 10 TABLETS
     Route: 065
  4. REMICADE [Suspect]
     Indication: COLITIS ULCERATIVE
     Route: 042
     Dates: start: 20091204
  5. REMICADE [Suspect]
     Dosage: TOTAL OF 5 INFUSIONS
     Route: 042
     Dates: start: 20091002
  6. DIPENTUM [Concomitant]
     Route: 048
     Dates: start: 20051129, end: 20100208
  7. PENTASA [Concomitant]
  8. SULFASALAZINE [Concomitant]
     Indication: ANKYLOSING SPONDYLITIS
     Dosage: INITIATED ^YEARS^ AGO
     Route: 048
     Dates: end: 20100203
  9. MESALAMINE [Concomitant]
  10. VITAMIN B+C [Concomitant]
  11. ACETAMINOPHEN [Concomitant]
     Dosage: 5 GRAMS IN TOTAL
     Dates: start: 20100101

REACTIONS (4)
  - HEPATIC NECROSIS [None]
  - HEPATIC ENZYME INCREASED [None]
  - LIVER TRANSPLANT REJECTION [None]
  - ENCEPHALOPATHY [None]
